FAERS Safety Report 5381222-2 (Version None)
Quarter: 2007Q3

REPORT INFORMATION
  Report Type: 
  Country: None (occurrence: None)
  Receive Date: 20070706
  Receipt Date: 20070626
  Transmission Date: 20080115
  Serious: Yes (Hospitalization)
  Sender: FDA-Public Use
  Company Number: DE-PFIZER INC-2007053589

PATIENT
  Age: 46 Year
  Sex: Male

DRUGS (1)
  1. BEXTRA [Suspect]

REACTIONS (5)
  - CHILLS [None]
  - DYSPNOEA [None]
  - PRURITUS [None]
  - RASH [None]
  - SWELLING FACE [None]
